FAERS Safety Report 8202539-X (Version None)
Quarter: 2012Q1

REPORT INFORMATION
  Report Type: 
  Country: None (occurrence: None)
  Receive Date: 20120312
  Receipt Date: 20120301
  Transmission Date: 20120608
  Serious: Yes (Hospitalization, Other)
  Sender: FDA-Public Use
  Company Number: HR-JNJFOC-20081103599

PATIENT
  Age: 36 Year
  Sex: Female

DRUGS (3)
  1. RISPERIDONE [Suspect]
     Route: 030
     Dates: start: 20070401, end: 20081001
  2. RISPERIDONE [Suspect]
     Indication: SCHIZOPHRENIA
     Route: 030
     Dates: start: 20090301
  3. DIAZEPAM [Suspect]
     Indication: SCHIZOPHRENIA
     Route: 065

REACTIONS (3)
  - AGGRESSION [None]
  - PSYCHOTIC DISORDER [None]
  - MATERNAL EXPOSURE DURING PREGNANCY [None]
